FAERS Safety Report 19237738 (Version 4)
Quarter: 2024Q4

REPORT INFORMATION
  Report Type: Spontaneous
  Country: US (occurrence: US)
  Receive Date: 20210510
  Receipt Date: 20241125
  Transmission Date: 20250114
  Serious: No
  Sender: GLAXOSMITHKLINE
  Company Number: US-GSKCCFUS-CASE-01048693_AE-62161

PATIENT
  Sex: Female

DRUGS (5)
  1. BREO ELLIPTA [Suspect]
     Active Substance: FLUTICASONE FUROATE\VILANTEROL TRIFENATATE
     Indication: Interstitial lung disease
     Dosage: UNK, UNK, QD, 100/25 MCG, FOR SOME TIME
     Route: 055
  2. ADVAIR HFA [Suspect]
     Active Substance: FLUTICASONE PROPIONATE\SALMETEROL XINAFOATE
     Indication: Product used for unknown indication
     Dosage: UNK
  3. MONTELUKAST [Suspect]
     Active Substance: MONTELUKAST
     Indication: Product used for unknown indication
     Dosage: UNK
  4. FLUTICASONE [Concomitant]
     Active Substance: FLUTICASONE
     Indication: Product used for unknown indication
     Dosage: UNK
  5. AZELASTINE [Concomitant]
     Active Substance: AZELASTINE
     Indication: Product used for unknown indication
     Dosage: UNK

REACTIONS (15)
  - Cough [Not Recovered/Not Resolved]
  - Productive cough [Unknown]
  - Wheezing [Unknown]
  - Muscle spasms [Unknown]
  - Trismus [Unknown]
  - Abdominal pain upper [Unknown]
  - Muscular weakness [Recovered/Resolved]
  - Total lung capacity abnormal [Unknown]
  - Contusion [Unknown]
  - Asthma [Unknown]
  - Hypersensitivity [Unknown]
  - Respiration abnormal [Unknown]
  - Dysphonia [Unknown]
  - Drug ineffective [Unknown]
  - Product use in unapproved indication [Unknown]
